FAERS Safety Report 22520034 (Version 1)
Quarter: 2023Q2

REPORT INFORMATION
  Report Type: Spontaneous
  Country: US (occurrence: US)
  Receive Date: 20230605
  Receipt Date: 20230605
  Transmission Date: 20230721
  Serious: Yes (Hospitalization)
  Sender: FDA-Public Use
  Company Number: US-MYLANLABS-2023M1057077

PATIENT
  Age: 57 Year
  Sex: Male

DRUGS (1)
  1. LOPERAMIDE [Suspect]
     Active Substance: LOPERAMIDE
     Indication: Diarrhoea infectious
     Dosage: UNK
     Route: 065

REACTIONS (2)
  - Intestinal pseudo-obstruction [Recovered/Resolved]
  - Medication error [Recovered/Resolved]
